FAERS Safety Report 11718544 (Version 1)
Quarter: 2015Q4

REPORT INFORMATION
  Report Type: Spontaneous
  Country: TR (occurrence: TR)
  Receive Date: 20151110
  Receipt Date: 20151110
  Transmission Date: 20160304
  Serious: Yes (Death, Hospitalization)
  Sender: FDA-Public Use
  Company Number: TR-WATSON-2015-23950

PATIENT
  Age: 78 Year
  Sex: Male

DRUGS (1)
  1. HEPARIN SODIUM (UNKNOWN) [Suspect]
     Active Substance: HEPARIN SODIUM
     Indication: ACUTE CORONARY SYNDROME
     Dosage: UNK
     Route: 065

REACTIONS (2)
  - Heparin-induced thrombocytopenia [Fatal]
  - Atrial thrombosis [Fatal]
